FAERS Safety Report 23423037 (Version 3)
Quarter: 2024Q1

REPORT INFORMATION
  Report Type: Spontaneous
  Country: CN (occurrence: CN)
  Receive Date: 20240119
  Receipt Date: 20240123
  Transmission Date: 20240410
  Serious: Yes (Hospitalization, Other)
  Sender: FDA-Public Use
  Company Number: CN-009507513-2401CHN009941

PATIENT
  Age: 46 Year
  Sex: Male
  Weight: 56.5 kg

DRUGS (1)
  1. KEYTRUDA [Suspect]
     Active Substance: PEMBROLIZUMAB
     Indication: Oropharyngeal squamous cell carcinoma
     Dosage: 200 MG, ONCE
     Route: 041
     Dates: start: 20231208, end: 20231208

REACTIONS (2)
  - Liver injury [Recovering/Resolving]
  - Immune-mediated hepatitis [Unknown]

NARRATIVE: CASE EVENT DATE: 20231215
